FAERS Safety Report 5079841-6 (Version None)
Quarter: 2006Q3

REPORT INFORMATION
  Report Type: 
  Country: None (occurrence: None)
  Receive Date: 20060720
  Receipt Date: 20050622
  Transmission Date: 20061208
  Serious: Yes (Other)
  Sender: FDA-Public Use
  Company Number: 2005081462

PATIENT
  Age: 80 Year
  Sex: Female
  Weight: 91.6266 kg

DRUGS (16)
  1. CELEBREX [Suspect]
     Indication: OSTEOPOROSIS
     Dosage: 200 MG (200 MG,1 IN 1 D),ORAL
     Route: 048
  2. CELEBREX [Suspect]
     Indication: RHEUMATOID ARTHRITIS
     Dosage: 200 MG (200 MG,1 IN 1 D),ORAL
     Route: 048
  3. LIPITOR [Concomitant]
  4. COUMADIN [Concomitant]
  5. ALTACE [Concomitant]
  6. FOSAMAX [Concomitant]
  7. PROTONIX [Concomitant]
  8. LASIX [Concomitant]
  9. KLOR-CON [Concomitant]
  10. BENICAR [Concomitant]
  11. REGLAN [Concomitant]
  12. TAMOXIFEN CITRATE [Concomitant]
  13. NITROGLYCERIN [Concomitant]
  14. CALCIUM (CALCIUM) [Concomitant]
  15. VITAMIN C (VITAMIN C) [Concomitant]
  16. VITAMIN E [Concomitant]

REACTIONS (4)
  - BACK PAIN [None]
  - BODY HEIGHT DECREASED [None]
  - BREAST CANCER FEMALE [None]
  - PAIN [None]
